FAERS Safety Report 4821016-7 (Version None)
Quarter: 2005Q4

REPORT INFORMATION
  Report Type: 
  Country: None (occurrence: None)
  Receive Date: 20051103
  Receipt Date: 20051103
  Transmission Date: 20060501
  Serious: Yes (Hospitalization)
  Sender: FDA-Public Use
  Company Number: None

PATIENT
  Age: 61 Year
  Sex: Male
  Weight: 76.7 kg

DRUGS (2)
  1. VICODIN [Suspect]
  2. VERAPAMIL [Suspect]
     Indication: HYPERTENSION
     Dosage: 120 MG, TAKE ONE, ORAL
     Route: 048
     Dates: start: 20040910, end: 20050911

REACTIONS (2)
  - CONSTIPATION [None]
  - FAECALOMA [None]
